FAERS Safety Report 12577482 (Version 2)
Quarter: 2016Q3

REPORT INFORMATION
  Report Type: Spontaneous
  Country: US (occurrence: US)
  Receive Date: 20160720
  Receipt Date: 20160811
  Transmission Date: 20161109
  Serious: Yes (Hospitalization)
  Sender: FDA-Public Use
  Company Number: US-JAZZ-2016-US-012217

PATIENT
  Sex: Female

DRUGS (39)
  1. DOXYCYCLINE HYCLATE. [Concomitant]
     Active Substance: DOXYCYCLINE HYCLATE
  2. BOTOX [Concomitant]
     Active Substance: ONABOTULINUMTOXINA
  3. MAGNESIUM CARBONATE [Concomitant]
     Active Substance: MAGNESIUM CARBONATE
  4. BACLOFEN. [Concomitant]
     Active Substance: BACLOFEN
  5. BUPROPION HCL [Concomitant]
     Active Substance: BUPROPION HYDROCHLORIDE
  6. VENLAFAXINE HCL [Concomitant]
     Active Substance: VENLAFAXINE HYDROCHLORIDE
  7. VITAMIN D [Concomitant]
     Active Substance: CHOLECALCIFEROL
  8. XYREM [Suspect]
     Active Substance: SODIUM OXYBATE
     Dosage: 4 G, BID
     Route: 048
  9. MAGNESIUM OXIDE. [Concomitant]
     Active Substance: MAGNESIUM OXIDE
  10. DIAZEPAM. [Concomitant]
     Active Substance: DIAZEPAM
  11. FLUCONAZOLE. [Concomitant]
     Active Substance: FLUCONAZOLE
  12. AMBIEN [Concomitant]
     Active Substance: ZOLPIDEM TARTRATE
  13. BIOTIN [Concomitant]
     Active Substance: BIOTIN
  14. MAGNESIUM OXIDE. [Concomitant]
     Active Substance: MAGNESIUM OXIDE
  15. MUPIROCIN. [Concomitant]
     Active Substance: MUPIROCIN
  16. RESTASIS [Concomitant]
     Active Substance: CYCLOSPORINE
  17. XYREM [Suspect]
     Active Substance: SODIUM OXYBATE
     Indication: INSOMNIA
     Dosage: 4.5 G, BID
     Route: 048
     Dates: start: 201512
  18. FUROSEMIDE. [Concomitant]
     Active Substance: FUROSEMIDE
  19. PHENAZOPYRIDINE. [Concomitant]
     Active Substance: PHENAZOPYRIDINE
  20. CALCI-CHEW [Concomitant]
  21. SYNTHROID [Concomitant]
     Active Substance: LEVOTHYROXINE SODIUM
  22. GRAPEFRUIT. [Concomitant]
     Active Substance: GRAPEFRUIT
  23. AMITRIPTYLINE HCL [Concomitant]
     Active Substance: AMITRIPTYLINE
  24. ROPINIROLE HCL [Concomitant]
     Active Substance: ROPINIROLE HYDROCHLORIDE
  25. CETIRIZINE HCL [Concomitant]
     Active Substance: CETIRIZINE HYDROCHLORIDE
  26. CYCLOBENZAPRINE [Concomitant]
     Active Substance: CYCLOBENZAPRINE
  27. ESTRADIOL. [Concomitant]
     Active Substance: ESTRADIOL
  28. ZINC ACETATE [Concomitant]
     Active Substance: ZINC ACETATE
  29. NYSTATIN. [Concomitant]
     Active Substance: NYSTATIN
  30. ACYCLOVIR. [Concomitant]
     Active Substance: ACYCLOVIR
  31. TOPIRAMATE. [Concomitant]
     Active Substance: TOPIRAMATE
  32. VITAMIN B COMPLEX [Concomitant]
     Active Substance: CYANOCOBALAMIN\DEXPANTHENOL\NIACINAMIDE\PYRIDOXINE HYDROCHLORIDE\RIBOFLAVIN 5^-PHOSPHATE SODIUM\THIAMINE HYDROCHLORIDE\VITAMIN B COMPLEX
  33. FOLIC ACID. [Concomitant]
     Active Substance: FOLIC ACID
  34. RED CLOVER [Concomitant]
     Active Substance: RED CLOVER
  35. VITAMIN D3 [Concomitant]
     Active Substance: CHOLECALCIFEROL
  36. RHODIOLA [Concomitant]
     Active Substance: HERBALS
  37. NADOLOL. [Concomitant]
     Active Substance: NADOLOL
  38. CLONAZEPAM. [Concomitant]
     Active Substance: CLONAZEPAM
  39. ONDANSETRON HCL [Concomitant]
     Active Substance: ONDANSETRON HYDROCHLORIDE

REACTIONS (12)
  - Fungal infection [Not Recovered/Not Resolved]
  - Decreased appetite [Recovering/Resolving]
  - Tinnitus [Not Recovered/Not Resolved]
  - Terminal insomnia [Unknown]
  - Weight decreased [Unknown]
  - Migraine [Not Recovered/Not Resolved]
  - Dysphonia [Not Recovered/Not Resolved]
  - Musculoskeletal stiffness [Not Recovered/Not Resolved]
  - Dysphagia [Not Recovered/Not Resolved]
  - Pain [Not Recovered/Not Resolved]
  - Fatigue [Unknown]
  - Gait disturbance [Not Recovered/Not Resolved]
